FAERS Safety Report 17357374 (Version 2)
Quarter: 2020Q1

REPORT INFORMATION
  Report Type: Spontaneous
  Country: US (occurrence: US)
  Receive Date: 20200131
  Receipt Date: 20200206
  Transmission Date: 20200409
  Serious: Yes (Other)
  Sender: FDA-Public Use
  Company Number: NVSC2020US024272

PATIENT
  Sex: Female

DRUGS (2)
  1. OXALIPLATIN. [Suspect]
     Active Substance: OXALIPLATIN
     Indication: PRODUCT USED FOR UNKNOWN INDICATION
     Route: 065
  2. LOSARTAN. [Suspect]
     Active Substance: LOSARTAN
     Indication: PRODUCT USED FOR UNKNOWN INDICATION
     Dosage: 1 DF, QD
     Route: 048

REACTIONS (29)
  - Depressed mood [Unknown]
  - Lacrimation increased [Unknown]
  - Vitamin D deficiency [Unknown]
  - Weight increased [Unknown]
  - Rectal cancer stage III [Unknown]
  - Anorectal disorder [Unknown]
  - Pulmonary mass [Unknown]
  - Vomiting [Unknown]
  - Alopecia [Unknown]
  - Enzyme level increased [Unknown]
  - Throat tightness [Unknown]
  - Flushing [Unknown]
  - Constipation [Unknown]
  - Steatohepatitis [Unknown]
  - Frequent bowel movements [Unknown]
  - Anxiety [Unknown]
  - Nausea [Unknown]
  - Fatigue [Unknown]
  - Diarrhoea [Unknown]
  - Abdominal pain [Unknown]
  - Hepatotoxicity [Unknown]
  - Rectal adenocarcinoma [Unknown]
  - Haemorrhage [Unknown]
  - Injury [Unknown]
  - Rectal lesion [Unknown]
  - Tearfulness [Unknown]
  - Change of bowel habit [Unknown]
  - Paraesthesia [Unknown]
  - Depression [Unknown]
